FAERS Safety Report 8346605-7 (Version None)
Quarter: 2012Q2

REPORT INFORMATION
  Report Type: 
  Country: None (occurrence: None)
  Receive Date: 20120509
  Receipt Date: 20120503
  Transmission Date: 20120825
  Serious: Yes (Other)
  Sender: FDA-Public Use
  Company Number: PHEH2012US009494

PATIENT
  Sex: Female

DRUGS (1)
  1. EXELON [Suspect]

REACTIONS (7)
  - ANGER [None]
  - NIGHTMARE [None]
  - CEREBROVASCULAR ACCIDENT [None]
  - CRYING [None]
  - CONVULSION [None]
  - FEELING ABNORMAL [None]
  - AMNESIA [None]
